FAERS Safety Report 9259272 (Version 3)
Quarter: 2013Q3

REPORT INFORMATION
  Report Type: Spontaneous
  Country: JP (occurrence: JP)
  Receive Date: 20130426
  Receipt Date: 20130920
  Transmission Date: 20140515
  Serious: Yes (Other)
  Sender: FDA-Public Use
  Company Number: JP-ALLERGAN-1305930US

PATIENT
  Age: 57 Year
  Sex: Male

DRUGS (4)
  1. BOTOX [Suspect]
     Indication: MUSCLE SPASMS
     Dosage: UNK UNK, SINGLE
     Route: 030
     Dates: start: 20121212, end: 20121212
  2. AMLODIPINE [Concomitant]
     Indication: HYPERTENSION
     Dosage: 1 DF, QD
     Route: 048
     Dates: start: 20100513
  3. ENALAPRIL MALEATE [Concomitant]
     Indication: HYPERTENSION
     Dosage: 1 DF, QD
     Dates: start: 20120802
  4. ARASENA A [Suspect]
     Indication: ORAL HERPES
     Dosage: UNK
     Route: 061
     Dates: start: 20121206

REACTIONS (4)
  - Quadriplegia [Not Recovered/Not Resolved]
  - Asthenia [Recovering/Resolving]
  - Eyelid ptosis [Recovered/Resolved]
  - VIIth nerve paralysis [Recovering/Resolving]
